FAERS Safety Report 13006292 (Version 1)
Quarter: 2016Q4

REPORT INFORMATION
  Report Type: Spontaneous
  Country: US (occurrence: US)
  Receive Date: 20161207
  Receipt Date: 20161207
  Transmission Date: 20170207
  Serious: No
  Sender: FDA-Public Use
  Company Number: None

PATIENT
  Age: 77 Year
  Sex: Female

DRUGS (1)
  1. XARELTO [Suspect]
     Active Substance: RIVAROXABAN

REACTIONS (6)
  - Haematuria [None]
  - Haemoglobin decreased [None]
  - Melaena [None]
  - Drug prescribing error [None]
  - Gastrointestinal haemorrhage [None]
  - Accidental overdose [None]

NARRATIVE: CASE EVENT DATE: 2016
